FAERS Safety Report 10008027 (Version 2)
Quarter: 2014Q1

REPORT INFORMATION
  Report Type: Spontaneous
  Country: TW (occurrence: TW)
  Receive Date: 20140313
  Receipt Date: 20140326
  Transmission Date: 20141002
  Serious: Yes (Hospitalization)
  Sender: FDA-Public Use
  Company Number: TW-ROCHE-1361425

PATIENT
  Age: 61 Year
  Sex: Female

DRUGS (7)
  1. ACTEMRA [Suspect]
     Indication: RHEUMATOID ARTHRITIS
     Dosage: LAST DOSE PRIOR TO EVENT: 05/FEB/2014
     Route: 041
     Dates: start: 20130206
  2. PREDNISOLONE [Concomitant]
     Indication: RHEUMATOID ARTHRITIS
     Route: 048
     Dates: start: 20080910
  3. CELECOXIB [Concomitant]
     Indication: RHEUMATOID ARTHRITIS
     Route: 048
     Dates: start: 20070523
  4. PARACETAMOL/TRAMADOL [Concomitant]
     Indication: RHEUMATOID ARTHRITIS
     Route: 048
     Dates: start: 20111116
  5. ALPRAZOLAM [Concomitant]
     Indication: PROPHYLAXIS
     Route: 048
     Dates: start: 20090610
  6. ATORVASTATIN [Concomitant]
     Indication: PROPHYLAXIS
     Route: 048
     Dates: start: 20120725
  7. AMLODIPINE [Concomitant]
     Indication: PROPHYLAXIS
     Route: 048
     Dates: start: 20120111

REACTIONS (1)
  - Pneumonia [Not Recovered/Not Resolved]
